FAERS Safety Report 5200220-2 (Version None)
Quarter: 2007Q1

REPORT INFORMATION
  Report Type: 
  Country: None (occurrence: None)
  Receive Date: 20070103
  Receipt Date: 20061219
  Transmission Date: 20070707
  Serious: Yes (Other)
  Sender: FDA-Public Use
  Company Number: GXKR2006US08305

PATIENT
  Age: 26 Year
  Sex: Female

DRUGS (1)
  1. ASPIRIN [Suspect]
     Dosage: 80 325 MG TABLETS, OD

REACTIONS (10)
  - ABORTION SPONTANEOUS [None]
  - DRUG EXPOSURE DURING PREGNANCY [None]
  - DRUG TOXICITY [None]
  - INCORRECT DOSE ADMINISTERED [None]
  - METABOLIC ACIDOSIS [None]
  - PROLONGED LABOUR [None]
  - RESPIRATORY ALKALOSIS [None]
  - SMALL FOR DATES BABY [None]
  - TACHYPNOEA [None]
  - TINNITUS [None]
